FAERS Safety Report 7768779-9 (Version None)
Quarter: 2011Q3

REPORT INFORMATION
  Report Type: 
  Country: None (occurrence: None)
  Receive Date: 20110922
  Receipt Date: 20110425
  Transmission Date: 20111222
  Serious: Yes (Life-Threatening, Hospitalization)
  Sender: FDA-Public Use
  Company Number: US-ASTRAZENECA-2010SE33107

PATIENT
  Age: 12467 Day
  Sex: Female
  Weight: 88.9 kg

DRUGS (7)
  1. SEROQUEL XR [Suspect]
     Indication: BIPOLAR I DISORDER
     Route: 048
  2. SEROQUEL XR [Suspect]
     Route: 048
     Dates: start: 20110220
  3. SEROQUEL XR [Suspect]
     Route: 048
     Dates: start: 20110220
  4. CELEXA [Suspect]
     Indication: BIPOLAR I DISORDER
     Dosage: HALF TABLET
     Route: 048
     Dates: start: 20100414
  5. SEROQUEL XR [Suspect]
     Indication: BIPOLAR II DISORDER
     Route: 048
  6. SEROQUEL XR [Suspect]
     Route: 048
     Dates: start: 20101208, end: 20110310
  7. SEROQUEL XR [Suspect]
     Route: 048
     Dates: start: 20101208, end: 20110310

REACTIONS (3)
  - INTENTIONAL OVERDOSE [None]
  - SOMNOLENCE [None]
  - SUICIDE ATTEMPT [None]
